FAERS Safety Report 11474019 (Version 1)
Quarter: 2015Q3

REPORT INFORMATION
  Report Type: Spontaneous
  Country: US (occurrence: None)
  Receive Date: 20150902
  Receipt Date: 20150902
  Transmission Date: 20151125
  Serious: Yes (Hospitalization)
  Sender: FDA-Public Use
  Company Number: A-NJ2015-115363

PATIENT
  Age: 63 Year
  Sex: Male

DRUGS (3)
  1. VELETRI [Suspect]
     Active Substance: EPOPROSTENOL
     Indication: PULMONARY ARTERIAL HYPERTENSION
     Dosage: PER MIN
     Route: 042
     Dates: start: 20141226
  2. WARFARIN (WARFARIN) [Concomitant]
     Active Substance: WARFARIN
  3. SILDENAFIL CITRATE (SILDENAFIL CITRATE) [Concomitant]
     Active Substance: SILDENAFIL CITRATE

REACTIONS (3)
  - Acute right ventricular failure [None]
  - Fluid overload [None]
  - Cardiac failure acute [None]
